FAERS Safety Report 7262626-X (Version None)
Quarter: 2011Q1

REPORT INFORMATION
  Report Type: 
  Country: None (occurrence: None)
  Receive Date: 20110130
  Receipt Date: 20100921
  Transmission Date: 20110831
  Serious: No
  Sender: FDA-Public Use
  Company Number: US-ABBOTT-10P-163-0665510-00

PATIENT
  Sex: Male
  Weight: 80.812 kg

DRUGS (4)
  1. REMICADE [Concomitant]
     Indication: CROHN'S DISEASE
     Dates: start: 19950101
  2. HUMIRA [Suspect]
     Indication: CROHN'S DISEASE
     Dosage: RECEIVED 3 INJECTIONS
     Dates: start: 20060101, end: 20060101
  3. REMICADE [Concomitant]
     Dates: start: 20060101
  4. ACTOS [Concomitant]
     Indication: DIABETES MELLITUS

REACTIONS (3)
  - NONSPECIFIC REACTION [None]
  - DYSPNOEA [None]
  - HYPERVENTILATION [None]
